FAERS Safety Report 15819288 (Version 1)
Quarter: 2019Q1

REPORT INFORMATION
  Report Type: Spontaneous
  Country: US (occurrence: US)
  Receive Date: 20190114
  Receipt Date: 20190114
  Transmission Date: 20190417
  Serious: No
  Sender: FDA-Public Use
  Company Number: US-TAKEDA-2019TUS000761

PATIENT
  Sex: Female

DRUGS (4)
  1. COLAZAL [Concomitant]
     Active Substance: BALSALAZIDE DISODIUM
     Indication: CROHN^S DISEASE
     Dosage: UNK
  2. ENTYVIO [Suspect]
     Active Substance: VEDOLIZUMAB
     Indication: CROHN^S DISEASE
     Dosage: 300 MG, UNK
     Route: 042
     Dates: start: 201802
  3. METHOTREXATE. [Concomitant]
     Active Substance: METHOTREXATE
     Indication: CROHN^S DISEASE
     Dosage: UNK
  4. NALTREXONE [Concomitant]
     Active Substance: NALTREXONE
     Indication: CROHN^S DISEASE
     Dosage: 3 MG, UNK

REACTIONS (2)
  - Drug ineffective [Unknown]
  - Crohn^s disease [Not Recovered/Not Resolved]
